FAERS Safety Report 17296834 (Version 1)
Quarter: 2020Q1

REPORT INFORMATION
  Report Type: Spontaneous
  Country: US (occurrence: US)
  Receive Date: 20200122
  Receipt Date: 20200122
  Transmission Date: 20200409
  Serious: Yes (Other)
  Sender: FDA-Public Use
  Company Number: US-ACS-001618

PATIENT
  Age: 58 Year
  Sex: Female

DRUGS (3)
  1. AZITHROMYCIN ANHYDROUS. [Suspect]
     Active Substance: AZITHROMYCIN ANHYDROUS
     Route: 065
  2. FLAGYL [Suspect]
     Active Substance: METRONIDAZOLE\METRONIDAZOLE HYDROCHLORIDE
     Route: 065
  3. CEFTRIAXONE. [Suspect]
     Active Substance: CEFTRIAXONE
     Route: 065

REACTIONS (1)
  - Myasthenia gravis crisis [Recovered/Resolved]
